FAERS Safety Report 17901317 (Version 1)
Quarter: 2020Q2

REPORT INFORMATION
  Report Type: Spontaneous
  Country: US (occurrence: US)
  Receive Date: 20200616
  Receipt Date: 20200616
  Transmission Date: 20200714
  Serious: Yes (Life-Threatening)
  Sender: FDA-Public Use
  Company Number: None

PATIENT
  Age: 43 Year
  Sex: Female
  Weight: 101 kg

DRUGS (2)
  1. DEFINITY [Suspect]
     Active Substance: PERFLUTREN
     Indication: ECHOCARDIOGRAM
     Dates: start: 20200227, end: 20200227
  2. HEPARIN [Concomitant]
     Active Substance: HEPARIN SODIUM
     Dates: start: 20200226, end: 20200229

REACTIONS (7)
  - Bradycardia [None]
  - Pulmonary embolism [None]
  - Dyspnoea [None]
  - Cardiac arrest [None]
  - Chest pain [None]
  - Unresponsive to stimuli [None]
  - Anaemia [None]

NARRATIVE: CASE EVENT DATE: 20200227
